FAERS Safety Report 9226318 (Version 1)
Quarter: 2013Q2

REPORT INFORMATION
  Report Type: Spontaneous
  Country: FR (occurrence: FR)
  Receive Date: 20130411
  Receipt Date: 20130411
  Transmission Date: 20140414
  Serious: Yes (Death, Other)
  Sender: FDA-Public Use
  Company Number: FR-UCBSA-082431

PATIENT
  Age: 1 Hour
  Sex: Male
  Weight: .6 kg

DRUGS (1)
  1. KEPPRA [Suspect]
     Indication: EPILEPSY
     Dosage: 500MG IN MORNING AND 250MG IN EVENING
     Route: 064
     Dates: start: 20100923, end: 20110326

REACTIONS (7)
  - Multi-organ failure [Fatal]
  - Foetal cardiac disorder [Fatal]
  - Foetal growth restriction [Fatal]
  - Premature baby [Fatal]
  - Neonatal respiratory distress syndrome [Unknown]
  - Pulmonary arterial hypertension [Unknown]
  - Foetal exposure during pregnancy [Recovered/Resolved]
